FAERS Safety Report 5372805-4 (Version None)
Quarter: 2007Q2

REPORT INFORMATION
  Report Type: 
  Country: None (occurrence: None)
  Receive Date: 20070627
  Receipt Date: 20070615
  Transmission Date: 20071010
  Serious: Yes (Hospitalization, Other)
  Sender: FDA-Public Use
  Company Number: US-PFIZER INC-2007049218

PATIENT
  Sex: Female

DRUGS (3)
  1. SOLU-MEDROL [Suspect]
     Route: 042
     Dates: start: 20070314, end: 20070319
  2. REBIF [Suspect]
     Indication: MULTIPLE SCLEROSIS
     Route: 058
  3. PREDNISONE TAB [Concomitant]
     Route: 048
     Dates: start: 20070319, end: 20070101

REACTIONS (2)
  - DIPLOPIA [None]
  - PSYCHOTIC DISORDER [None]
